FAERS Safety Report 9808345 (Version 3)
Quarter: 2014Q2

REPORT INFORMATION
  Report Type: Spontaneous
  Country: US (occurrence: US)
  Receive Date: 20140110
  Receipt Date: 20140428
  Transmission Date: 20141212
  Serious: Yes (Death, Hospitalization)
  Sender: FDA-Public Use
  Company Number: US-BAXTER-2014BAX000668

PATIENT
  Sex: Male

DRUGS (1)
  1. DIANEAL LOW CALCIUM [Suspect]
     Indication: PERITONEAL DIALYSIS
     Route: 033
     Dates: start: 201310

REACTIONS (4)
  - Death [Fatal]
  - Abdominal distension [Recovered/Resolved]
  - Gastric haemorrhage [Unknown]
  - Pyrexia [Recovered/Resolved]
